FAERS Safety Report 4745036-6 (Version None)
Quarter: 2005Q3

REPORT INFORMATION
  Report Type: 
  Country: None (occurrence: None)
  Receive Date: 20050812
  Receipt Date: 20050802
  Transmission Date: 20060218
  Serious: Yes (Hospitalization)
  Sender: FDA-Public Use
  Company Number: 2005108385

PATIENT
  Age: 51 Year
  Sex: Male
  Weight: 120 kg

DRUGS (11)
  1. CARDURA [Suspect]
     Indication: HYPERTENSION
     Dosage: 4 MG (4 MG, QD), ORAL
     Route: 048
     Dates: start: 20031030, end: 20040422
  2. AMLODIPINE [Concomitant]
  3. ACETYLSALICYLIC ACID SRT [Concomitant]
  4. LUCETAM        (PIRACETAM) [Concomitant]
  5. METOPROLOL TARTRATE [Concomitant]
  6. RAMIPRIL [Concomitant]
  7. BRINALDIX      (CLOPAMIDE) [Concomitant]
  8. NITRODERM [Concomitant]
  9. XANAX [Concomitant]
  10. KALDYUM     (POTASSIUM CHLORIDE) [Concomitant]
  11. APROVEL        (IRBESARTAN) [Concomitant]

REACTIONS (7)
  - APHASIA [None]
  - BLOOD PRESSURE INCREASED [None]
  - BRADYPHRENIA [None]
  - CEREBRAL ISCHAEMIA [None]
  - CEREBROVASCULAR DISORDER [None]
  - HEMIPARESIS [None]
  - HYPOAESTHESIA [None]
